FAERS Safety Report 6143201-7 (Version None)
Quarter: 2009Q2

REPORT INFORMATION
  Report Type: 
  Country: None (occurrence: None)
  Receive Date: 20090403
  Receipt Date: 20030826
  Transmission Date: 20091009
  Serious: Yes (Hospitalization, Other)
  Sender: FDA-Public Use
  Company Number: DE-ROCHE-344276

PATIENT
  Sex: Female
  Weight: 56 kg

DRUGS (37)
  1. DACLIZUMAB [Suspect]
     Dosage: BASELINE VISIT
     Route: 042
     Dates: start: 20030726, end: 20030726
  2. DACLIZUMAB [Suspect]
     Dosage: WEEK 2 VISIT
     Route: 042
     Dates: start: 20030808, end: 20030808
  3. DACLIZUMAB [Suspect]
     Dosage: WEEK 4 VISIT
     Route: 042
     Dates: start: 20030825, end: 20030825
  4. MYCOPHENOLATE MOFETIL [Suspect]
     Route: 048
     Dates: start: 20030726
  5. MYCOPHENOLATE MOFETIL [Suspect]
     Route: 048
     Dates: start: 20030820, end: 20030821
  6. MYCOPHENOLATE MOFETIL [Suspect]
     Route: 048
     Dates: end: 20030923
  7. MYCOPHENOLATE MOFETIL [Suspect]
     Route: 048
     Dates: start: 20031013
  8. SIROLIMUS [Suspect]
     Route: 048
     Dates: start: 20030726
  9. SIROLIMUS [Suspect]
     Route: 048
     Dates: start: 20030729, end: 20030807
  10. SIROLIMUS [Suspect]
     Route: 048
     Dates: start: 20030810, end: 20030813
  11. CYCLOSPORINE [Suspect]
     Route: 065
     Dates: start: 20030827
  12. TACROLIMUS [Suspect]
     Route: 065
  13. PREDNISONE [Suspect]
     Route: 048
     Dates: start: 20030728, end: 20030728
  14. PREDNISONE [Suspect]
     Route: 048
     Dates: start: 20030729, end: 20030729
  15. PREDNISONE [Suspect]
     Route: 048
     Dates: start: 20030730, end: 20030730
  16. PREDNISONE [Suspect]
     Route: 048
     Dates: start: 20030731, end: 20030731
  17. PREDNISONE [Suspect]
     Route: 048
     Dates: start: 20030801, end: 20030801
  18. PREDNISONE [Suspect]
     Route: 048
     Dates: start: 20030802, end: 20030802
  19. PREDNISONE [Suspect]
     Route: 048
     Dates: start: 20030803, end: 20030803
  20. PREDNISONE [Suspect]
     Route: 048
     Dates: start: 20030804, end: 20030804
  21. PREDNISONE [Suspect]
     Route: 048
     Dates: start: 20030805, end: 20030805
  22. PREDNISONE [Suspect]
     Route: 048
     Dates: start: 20030806, end: 20030806
  23. PREDNISONE [Suspect]
     Route: 048
     Dates: start: 20030807, end: 20030807
  24. PREDNISONE [Suspect]
     Route: 048
     Dates: start: 20030808, end: 20030808
  25. PREDNISONE [Suspect]
     Route: 048
     Dates: start: 20030809, end: 20030809
  26. PREDNISONE [Suspect]
     Route: 048
     Dates: start: 20030810, end: 20030810
  27. PREDNISONE [Suspect]
     Route: 048
     Dates: start: 20030811
  28. PREDNISOLONE [Suspect]
     Route: 042
     Dates: start: 20030726
  29. PREDNISOLONE [Suspect]
     Route: 042
     Dates: start: 20030727
  30. GANCICLOVIR [Concomitant]
     Dosage: ALSO REPORTEDLY RECEIVED AS 2.75 ML IV PER DAY
     Route: 048
     Dates: start: 20030727
  31. BISOPROLOL [Concomitant]
     Route: 048
     Dates: start: 20030730
  32. BISOPROLOL [Concomitant]
     Route: 048
     Dates: start: 20030804
  33. BISOPROLOL [Concomitant]
     Route: 048
     Dates: start: 20030906
  34. FUROSEMIDE [Concomitant]
     Route: 048
     Dates: start: 20030820
  35. PANTOPRAZOLE SODIUM [Concomitant]
     Route: 048
     Dates: start: 20030726
  36. SIMVASTATIN [Concomitant]
     Route: 048
     Dates: start: 20040203
  37. COTRIMOXAZOLE [Concomitant]
     Dates: start: 20030728, end: 20080815

REACTIONS (3)
  - SEPSIS [None]
  - TUBULOINTERSTITIAL NEPHRITIS [None]
  - URINARY TRACT INFECTION [None]
